FAERS Safety Report 9263160 (Version 1)
Quarter: 2013Q1

REPORT INFORMATION
  Report Type: Spontaneous
  Country: US (occurrence: None)
  Receive Date: 20121212
  Receipt Date: 20121212
  Transmission Date: 20140127
  Serious: No
  Sender: FDA-Public Use
  Company Number: 12010USA013115

PATIENT
  Sex: Male

DRUGS (2)
  1. VICTRELIS [Suspect]
  2. ISENTRESS [Suspect]

REACTIONS (3)
  - Cyst [None]
  - Skin ulcer [None]
  - Rash [None]
